FAERS Safety Report 11940772 (Version 2)
Quarter: 2016Q1

REPORT INFORMATION
  Report Type: Spontaneous
  Country: US (occurrence: US)
  Receive Date: 20160122
  Receipt Date: 20160225
  Transmission Date: 20160526
  Serious: Yes (Death)
  Sender: FDA-Public Use
  Company Number: PHEH2016US001625

PATIENT
  Age: 59 Year
  Sex: Male

DRUGS (1)
  1. FARYDAK [Suspect]
     Active Substance: PANOBINOSTAT
     Indication: PLASMA CELL MYELOMA
     Dosage: 10 MG, UNK (1 CAPSULE ON MONDAY, WEDNESDAY AND FRIDAY FOR 2 WEEKS
     Route: 048
     Dates: end: 20151125

REACTIONS (2)
  - Plasma cell myeloma [Fatal]
  - Back pain [Unknown]

NARRATIVE: CASE EVENT DATE: 20160117
